FAERS Safety Report 16769407 (Version 2)
Quarter: 2019Q3

REPORT INFORMATION
  Report Type: Other
  Country: US (occurrence: US)
  Receive Date: 20190903
  Receipt Date: 20190919
  Transmission Date: 20191005
  Serious: Yes (Hospitalization, Other)
  Sender: FDA-Public Use
  Company Number: US-INTERCEPT-PM2019001209

PATIENT
  Age: 61 Year
  Sex: Female

DRUGS (1)
  1. OCALIVA [Suspect]
     Active Substance: OBETICHOLIC ACID
     Indication: PRIMARY BILIARY CHOLANGITIS
     Dosage: 5 MG, QD
     Route: 048
     Dates: start: 20190703

REACTIONS (11)
  - Diplopia [Recovered/Resolved]
  - Fatigue [Unknown]
  - Arrhythmia [Unknown]
  - Hypotension [Unknown]
  - Abdominal pain [Unknown]
  - Chest pain [Recovering/Resolving]
  - Product dose omission [Recovered/Resolved]
  - Palpitations [Recovering/Resolving]
  - Dizziness [Recovered/Resolved]
  - Formication [Unknown]
  - Diarrhoea [Unknown]

NARRATIVE: CASE EVENT DATE: 2019
